FAERS Safety Report 21814175 (Version 1)
Quarter: 2023Q1

REPORT INFORMATION
  Report Type: Spontaneous
  Country: US (occurrence: US)
  Receive Date: 20230104
  Receipt Date: 20230104
  Transmission Date: 20230418
  Serious: No
  Sender: FDA-Public Use
  Company Number: US-BRISTOL-MYERS SQUIBB COMPANY-2022-158517

PATIENT
  Age: 76 Year
  Sex: Female
  Weight: 49.8 kg

DRUGS (1)
  1. REVLIMID [Suspect]
     Active Substance: LENALIDOMIDE
     Indication: Myelofibrosis
     Dosage: ONCE DAILY IN AM
     Route: 048
     Dates: start: 20221201

REACTIONS (3)
  - Dyspnoea [Unknown]
  - Cough [Unknown]
  - Off label use [Unknown]
